FAERS Safety Report 24306037 (Version 1)
Quarter: 2024Q3

REPORT INFORMATION
  Report Type: Spontaneous
  Country: CA (occurrence: CA)
  Receive Date: 20240911
  Receipt Date: 20240911
  Transmission Date: 20241017
  Serious: Yes (Hospitalization)
  Sender: ACCORD
  Company Number: CA-MLMSERVICE-20240826-PI172308-00249-1

PATIENT
  Age: 69 Year
  Sex: Female

DRUGS (5)
  1. OXALIPLATIN [Suspect]
     Active Substance: OXALIPLATIN
     Indication: Colon cancer
     Route: 042
  2. ATORVASTATIN [Concomitant]
     Active Substance: ATORVASTATIN
  3. FLUTICASONE PROPIONATE\SALMETEROL XINAFOATE [Concomitant]
     Active Substance: FLUTICASONE PROPIONATE\SALMETEROL XINAFOATE
     Dosage: AS NEEDED
     Route: 042
  4. ONDANSETRON [Concomitant]
     Active Substance: ONDANSETRON
     Dosage: SINGLE DOSES, RECEIVED TWENTY MINUTES PRIOR TO HER FIRST OXALIPLATIN INFUSION
     Route: 048
  5. DEXAMETHASONE [Concomitant]
     Active Substance: DEXAMETHASONE
     Dosage: SINGLE DOSES, RECEIVED TWENTY MINUTES PRIOR TO HER FIRST OXALIPLATIN INFUSION
     Route: 048

REACTIONS (1)
  - Stress cardiomyopathy [Recovering/Resolving]
